FAERS Safety Report 5513207-7 (Version None)
Quarter: 2007Q4

REPORT INFORMATION
  Report Type: 
  Country: None (occurrence: None)
  Receive Date: 20071112
  Receipt Date: 20071029
  Transmission Date: 20080405
  Serious: Yes (Hospitalization)
  Sender: FDA-Public Use
  Company Number: AT-ROCHE-528096

PATIENT
  Age: 74 Year
  Sex: Female
  Weight: 62 kg

DRUGS (6)
  1. CAPECITABINE [Suspect]
     Indication: COLON CANCER
     Dosage: DOSE REPORTED AS 3-0-4 TBL. TWICE DAILY FOR 14 DAYS AS PER PROTOCOL. REPORTED AS SECOND CYCLE.
     Route: 048
     Dates: start: 20070801
  2. CAPECITABINE [Suspect]
     Route: 048
     Dates: start: 20071013
  3. SIMVASTATIN [Concomitant]
     Route: 048
  4. THYREX [Concomitant]
     Indication: HYPOTHYROIDISM
     Route: 048
  5. ATACAND HCT [Concomitant]
     Indication: HYPERTENSION
     Route: 048
  6. PANTOPRAZOLE SODIUM [Concomitant]
     Indication: ILL-DEFINED DISORDER
     Route: 048

REACTIONS (1)
  - FALL [None]
